APPROVED DRUG PRODUCT: TYLENOL W/ CODEINE NO. 1
Active Ingredient: ACETAMINOPHEN; CODEINE PHOSPHATE
Strength: 300MG;7.5MG
Dosage Form/Route: TABLET;ORAL
Application: A085055 | Product #001
Applicant: JANSSEN PHARMACEUTICALS INC
Approved: Approved Prior to Jan 1, 1982 | RLD: No | RS: No | Type: DISCN